FAERS Safety Report 9963005 (Version 1)
Quarter: 2014Q1

REPORT INFORMATION
  Report Type: Spontaneous
  Country: DZ (occurrence: DZ)
  Receive Date: 20140305
  Receipt Date: 20140305
  Transmission Date: 20141002
  Serious: Yes (Other)
  Sender: FDA-Public Use
  Company Number: DZ-SA-2014SA028172

PATIENT
  Age: 81 Year
  Sex: Female
  Weight: 60 kg

DRUGS (8)
  1. LOVENOX [Suspect]
     Indication: PROPHYLAXIS
     Dosage: STRENGTH: 40 MG
     Route: 065
     Dates: start: 20140217, end: 20140219
  2. LOVENOX [Suspect]
     Indication: PROPHYLAXIS
     Route: 065
  3. CEFIZOX [Concomitant]
  4. PARALGIN FORTE [Concomitant]
  5. MOPRAL [Concomitant]
  6. AMLOR [Concomitant]
     Indication: HYPERTENSION
  7. LOXEN [Concomitant]
  8. ASPEGIC [Concomitant]

REACTIONS (2)
  - Wound [Recovered/Resolved]
  - Haematoma [Recovering/Resolving]
